FAERS Safety Report 23769972 (Version 1)
Quarter: 2024Q2

REPORT INFORMATION
  Report Type: Spontaneous
  Country: US (occurrence: None)
  Receive Date: 20240421
  Receipt Date: 20240421
  Transmission Date: 20240716
  Serious: Yes (Other)
  Sender: FDA-Public Use
  Company Number: None

PATIENT
  Age: 67 Year
  Sex: Male
  Weight: 101.25 kg

DRUGS (2)
  1. ABIRATERONE [Suspect]
     Active Substance: ABIRATERONE
     Dosage: 1000 MG DAILY ?
  2. PREDNISONE [Concomitant]
     Active Substance: PREDNISONE
     Dates: start: 20230115, end: 20240421

REACTIONS (5)
  - Haematuria [None]
  - Chromaturia [None]
  - Coagulopathy [None]
  - Haemorrhage [None]
  - Haemoglobin decreased [None]

NARRATIVE: CASE EVENT DATE: 20240323
